FAERS Safety Report 21555601 (Version 1)
Quarter: 2022Q4

REPORT INFORMATION
  Report Type: Spontaneous
  Country: DK (occurrence: DK)
  Receive Date: 20221104
  Receipt Date: 20221104
  Transmission Date: 20230113
  Serious: Yes (Other)
  Sender: FDA-Public Use
  Company Number: None

PATIENT
  Age: 60 Year
  Sex: Male

DRUGS (5)
  1. DOXORUBICIN [Suspect]
     Active Substance: DOXORUBICIN
     Indication: Testicular neoplasm
     Dosage: DOSAGE: UNKNOWN. STRENGTH: UNKNOWN. ADMINISTERED AS R-CHOP PROTOCOL   , DURATION : 148 DAYS
     Route: 065
     Dates: start: 2020, end: 20200528
  2. PREDNISOLONE [Suspect]
     Active Substance: PREDNISOLONE
     Indication: Testicular neoplasm
     Dosage: DOSAGE: UNKNOWN. STRENGTH: UNKNOWN. ADMINISTERED AS P-CHOP PROTOCOL , DURATION : 148 DAYS
     Route: 065
     Dates: start: 2020, end: 20200528
  3. RITUXIMAB [Suspect]
     Active Substance: RITUXIMAB
     Indication: Testicular neoplasm
     Dosage: DOSAGE: UNKNOWN. STRENGTH: UNKNOWN. ADMINISTERED AS R-CHOP PROTOCOL  , DURATION : 148 DAYS
     Route: 065
     Dates: start: 2020, end: 20200528
  4. ONCOVIN [Suspect]
     Active Substance: VINCRISTINE SULFATE
     Indication: Testicular neoplasm
     Dosage: DOSAGE: UNKNOWN. STRENGTH: 1 MG/ML. ADMINISTERED AS R-CHOP PROTOCOL , DURATION : 148 DAYS
     Route: 065
     Dates: start: 2020, end: 20200528
  5. CYCLOPHOSPHAMIDE [Suspect]
     Active Substance: CYCLOPHOSPHAMIDE
     Indication: Testicular neoplasm
     Dosage: DOSAGE: UNKNOWN. STRENGTH: UNKNOWN. ADMINISTERED AS R-CHOP PROTOCOL , DURATION : 148 DAYS
     Route: 065
     Dates: start: 2020, end: 20200528

REACTIONS (8)
  - Optic ischaemic neuropathy [Unknown]
  - Visual impairment [Not Recovered/Not Resolved]
  - Visual field defect [Unknown]
  - Paraesthesia [Unknown]
  - Pain in extremity [Recovered/Resolved]
  - Neuropathy peripheral [Unknown]
  - Hypoaesthesia [Recovered/Resolved]
  - Thrombosis [Unknown]

NARRATIVE: CASE EVENT DATE: 20200101
